FAERS Safety Report 16287470 (Version 2)
Quarter: 2019Q2

REPORT INFORMATION
  Report Type: Spontaneous
  Country: US (occurrence: US)
  Receive Date: 20190508
  Receipt Date: 20190617
  Transmission Date: 20190711
  Serious: Yes (Other)
  Sender: FDA-Public Use
  Company Number: US-AKORN PHARMACEUTICALS-2019AKN00939

PATIENT
  Age: 15 Year
  Sex: Male
  Weight: 71.9 kg

DRUGS (3)
  1. KEFLEX [Concomitant]
     Active Substance: CEPHALEXIN
     Dosage: 500 MG, 2X/DAY
  2. MYORISAN [Suspect]
     Active Substance: ISOTRETINOIN
     Indication: ACNE
     Dosage: 40 MG, 1X/DAY WITH FATTY FOODS
     Route: 048
     Dates: start: 20181217, end: 201902
  3. MYORISAN [Suspect]
     Active Substance: ISOTRETINOIN
     Dosage: 80 MG, 1X/DAY WITH FATTY FOODS
     Route: 048
     Dates: start: 201902, end: 20190330

REACTIONS (5)
  - Mood altered [Recovered/Resolved]
  - Self-injurious ideation [Recovered/Resolved]
  - Off label use [Recovered/Resolved]
  - Anger [Recovering/Resolving]
  - Depressed mood [Recovered/Resolved]

NARRATIVE: CASE EVENT DATE: 20181212
